FAERS Safety Report 25790492 (Version 1)
Quarter: 2025Q3

REPORT INFORMATION
  Report Type: Spontaneous
  Country: CN (occurrence: CN)
  Receive Date: 20250911
  Receipt Date: 20250911
  Transmission Date: 20251020
  Serious: Yes (Other)
  Sender: MERCK SHARP & DOHME LLC
  Company Number: CN-009507513-2327373

PATIENT
  Age: 92 Year
  Sex: Male

DRUGS (1)
  1. INVANZ [Suspect]
     Active Substance: ERTAPENEM SODIUM
     Indication: Anti-infective therapy
     Route: 041
     Dates: start: 20250626, end: 20250714

REACTIONS (4)
  - Altered state of consciousness [Recovered/Resolved]
  - Incorrect product administration duration [Unknown]
  - Psychomotor hyperactivity [Recovered/Resolved]
  - Expired product administered [Unknown]

NARRATIVE: CASE EVENT DATE: 20250626
